FAERS Safety Report 14826057 (Version 3)
Quarter: 2018Q3

REPORT INFORMATION
  Report Type: Spontaneous
  Country: CZ (occurrence: CZ)
  Receive Date: 20180430
  Receipt Date: 20180803
  Transmission Date: 20181010
  Serious: Yes (Hospitalization, Other)
  Sender: FDA-Public Use
  Company Number: CZ-IBIGEN-2018.03936

PATIENT
  Age: 36 Year
  Sex: Female

DRUGS (8)
  1. MEROPENEM. [Suspect]
     Active Substance: MEROPENEM
  2. UNK [Suspect]
     Active Substance: UNSPECIFIED INGREDIENT
     Indication: PNEUMONIA
     Dosage: UNK ()
  3. FLUCONAZOLE. [Suspect]
     Active Substance: FLUCONAZOLE
     Indication: PNEUMONIA
     Dosage: UNK ()
  4. METRONIDAZOLE. [Suspect]
     Active Substance: METRONIDAZOLE
  5. GENTAMICIN SULFATE. [Suspect]
     Active Substance: GENTAMICIN SULFATE
  6. CIPROFLOXACIN. [Suspect]
     Active Substance: CIPROFLOXACIN
     Indication: PNEUMONIA
     Dosage: UNK ()
  7. SULFAMETHOXAZOLE/TRIMETHOPRIM [Suspect]
     Active Substance: SULFAMETHOXAZOLE\TRIMETHOPRIM
     Indication: RESPIRATORY TRACT INFECTION
  8. UNK [Suspect]
     Active Substance: UNSPECIFIED INGREDIENT
     Indication: TOOTH INFECTION

REACTIONS (9)
  - Respiratory failure [Recovered/Resolved]
  - Malnutrition [Unknown]
  - Drug ineffective [Unknown]
  - Atrial fibrillation [Unknown]
  - Drug ineffective for unapproved indication [Recovered/Resolved]
  - Inflammatory marker increased [Recovered/Resolved]
  - Anaemia [Unknown]
  - Hypoglossal nerve paresis [Unknown]
  - Thrombosis [Unknown]

NARRATIVE: CASE EVENT DATE: 20170415
